FAERS Safety Report 4609761-X (Version None)
Quarter: 2005Q1

REPORT INFORMATION
  Report Type: 
  Country: None (occurrence: None)
  Receive Date: 20050314
  Receipt Date: 20050224
  Transmission Date: 20050727
  Serious: Yes (Other)
  Sender: FDA-Public Use
  Company Number: 2005-DE-00776GD

PATIENT
  Age: 44 Year
  Sex: Female

DRUGS (2)
  1. DICLOFENAC (DICLOFENAC) (NR) (DICLOFENAC SODIUM) [Suspect]
  2. QUETIAPINE (QUETIAPINE) (NR) [Suspect]

REACTIONS (1)
  - PANCYTOPENIA [None]
